FAERS Safety Report 4604711-4 (Version None)
Quarter: 2005Q1

REPORT INFORMATION
  Report Type: 
  Country: None (occurrence: None)
  Receive Date: 20050224
  Receipt Date: 20050106
  Transmission Date: 20050727
  Serious: No
  Sender: FDA-Public Use
  Company Number: SU-2005-002978

PATIENT
  Age: 74 Year
  Sex: Female
  Weight: 82.5547 kg

DRUGS (5)
  1. BENICAR [Suspect]
     Indication: HYPERTENSION
     Dosage: 20 MG QD PO
     Route: 048
     Dates: start: 20040101, end: 20040601
  2. BENICAR [Suspect]
     Indication: HYPERTENSION
     Dosage: 40 MG QD PO
     Route: 048
     Dates: start: 20040601
  3. SYNTHROID [Concomitant]
  4. BETAGAN [Concomitant]
  5. VITAMINS [Concomitant]

REACTIONS (1)
  - ALOPECIA [None]
